FAERS Safety Report 19673591 (Version 2)
Quarter: 2021Q3

REPORT INFORMATION
  Report Type: Spontaneous
  Country: US (occurrence: US)
  Receive Date: 20210809
  Receipt Date: 20210825
  Transmission Date: 20211014
  Serious: Yes (Other)
  Sender: FDA-Public Use
  Company Number: US-JNJFOC-20210800098

PATIENT
  Sex: Female

DRUGS (1)
  1. NEUTROGENA FRESH COOLING SUNSCREEN BODY MIST BROAD SPECTRUM SPF45 [Suspect]
     Active Substance: AVOBENZONE\HOMOSALATE\OCTISALATE\OCTOCRYLENE\OXYBENZONE
     Indication: PRODUCT USED FOR UNKNOWN INDICATION
     Dosage: USED FOR 2 WEEKS DURING SUMMER VACATION
     Route: 061

REACTIONS (1)
  - Skin cancer [Unknown]
